FAERS Safety Report 4489870-9 (Version None)
Quarter: 2004Q4

REPORT INFORMATION
  Report Type: 
  Country: None (occurrence: None)
  Receive Date: 20041101
  Receipt Date: 20041020
  Transmission Date: 20050328
  Serious: Yes (Hospitalization)
  Sender: FDA-Public Use
  Company Number: JP-BRISTOL-MYERS SQUIBB COMPANY-12743936

PATIENT
  Age: 92 Year
  Sex: Female

DRUGS (7)
  1. GATIFLOXACIN [Suspect]
     Indication: PNEUMONIA
     Route: 048
     Dates: start: 20041013, end: 20041015
  2. LANIRAPID [Concomitant]
     Route: 048
  3. FUROSEMIDE [Concomitant]
     Route: 048
  4. BAYASPIRIN [Concomitant]
     Route: 048
  5. KETAS [Concomitant]
     Route: 048
  6. CIBENOL [Concomitant]
     Route: 048
  7. NORVASC [Concomitant]
     Route: 048

REACTIONS (3)
  - DEPRESSED LEVEL OF CONSCIOUSNESS [None]
  - HYPERHIDROSIS [None]
  - HYPOGLYCAEMIA [None]
